FAERS Safety Report 12926692 (Version 1)
Quarter: 2016Q4

REPORT INFORMATION
  Report Type: Spontaneous
  Country: US (occurrence: US)
  Receive Date: 20161108
  Receipt Date: 20161108
  Transmission Date: 20170207
  Serious: Yes (Other)
  Sender: FDA-Public Use
  Company Number: US-MALLINCKRODT-T201605479

PATIENT
  Sex: Female

DRUGS (2)
  1. H.P. ACTHAR [Suspect]
     Active Substance: CORTICOTROPIN
     Dosage: UNKNOWN
     Route: 030
     Dates: start: 1978
  2. H.P. ACTHAR [Suspect]
     Active Substance: CORTICOTROPIN
     Indication: MULTIPLE SCLEROSIS
     Dosage: 120U ONCE A DAY FOR 5 DAYS EACH MONTH
     Route: 030
     Dates: start: 201604

REACTIONS (2)
  - Dysstasia [Unknown]
  - Abasia [Unknown]
